FAERS Safety Report 12211986 (Version 2)
Quarter: 2016Q2

REPORT INFORMATION
  Report Type: Spontaneous
  Country: US (occurrence: US)
  Receive Date: 20160325
  Receipt Date: 20160418
  Transmission Date: 20160815
  Serious: No
  Sender: FDA-Public Use
  Company Number: US-VIIV HEALTHCARE LIMITED-US2016041703

PATIENT
  Sex: Male
  Weight: 100.68 kg

DRUGS (1)
  1. TRIUMEQ [Suspect]
     Active Substance: ABACAVIR SULFATE\DOLUTEGRAVIR SODIUM\LAMIVUDINE
     Indication: HIV INFECTION
     Dosage: 600/50/300 MG, U
     Route: 048
     Dates: start: 20151227, end: 20160310

REACTIONS (6)
  - Fatigue [Recovered/Resolved]
  - Arthralgia [Unknown]
  - Gastrointestinal disorder [Unknown]
  - Paranoia [Unknown]
  - Adverse event [Unknown]
  - Emergency care [Recovered/Resolved]
